FAERS Safety Report 22371161 (Version 1)
Quarter: 2023Q2

REPORT INFORMATION
  Report Type: Spontaneous
  Country: US (occurrence: US)
  Receive Date: 20230526
  Receipt Date: 20230526
  Transmission Date: 20230722
  Serious: Yes (Hospitalization, Other)
  Sender: FDA-Public Use
  Company Number: US-CIPLA LTD.-2023US02791

PATIENT

DRUGS (1)
  1. TOPIRAMATE [Suspect]
     Active Substance: TOPIRAMATE
     Dosage: 36 GRAMS, UNK
     Route: 065

REACTIONS (4)
  - Encephalopathy [Recovering/Resolving]
  - Myoclonus [Recovered/Resolved]
  - Metabolic acidosis [Unknown]
  - Intentional overdose [Unknown]
